FAERS Safety Report 5304045-9 (Version None)
Quarter: 2007Q1

REPORT INFORMATION
  Report Type: 
  Country: None (occurrence: None)
  Receive Date: 20070201
  Receipt Date: 20061110
  Transmission Date: 20070707
  Serious: No
  Sender: FDA-Public Use
  Company Number: 2006PV025073

PATIENT
  Age: 68 Year
  Sex: Female
  Weight: 81.6475 kg

DRUGS (16)
  1. BYETTA [Suspect]
     Indication: DIABETES MELLITUS NON-INSULIN-DEPENDENT
     Dosage: 10 MCG;BID;SC
     Route: 058
     Dates: start: 20051101
  2. ACTOS [Concomitant]
  3. GLUCOPHAGE [Concomitant]
  4. GLIMEPIRIDE [Concomitant]
  5. FLONASE [Concomitant]
  6. LOVOXYL [Concomitant]
  7. LEXAPRO [Concomitant]
  8. ASCORBIC ACID [Concomitant]
  9. CALCIUM WITH VITAMIN D [Concomitant]
  10. MAGNESIUM SULFATE [Concomitant]
  11. ZINC [Concomitant]
  12. LOVASTATIN [Concomitant]
  13. ASPIRIN [Concomitant]
  14. VITAMIN CAP [Concomitant]
  15. XALATAN [Concomitant]
  16. AMBIEN [Concomitant]

REACTIONS (2)
  - ANAEMIA [None]
  - BLOOD GLUCOSE INCREASED [None]
